FAERS Safety Report 15264434 (Version 1)
Quarter: 2018Q3

REPORT INFORMATION
  Report Type: Spontaneous
  Country: US (occurrence: US)
  Receive Date: 20180810
  Receipt Date: 20180810
  Transmission Date: 20181010
  Serious: No
  Sender: FDA-Public Use
  Company Number: US-ASTRAZENECA-2018SF00972

PATIENT
  Sex: Female

DRUGS (2)
  1. ZOLMITRIPTAN. [Suspect]
     Active Substance: ZOLMITRIPTAN
     Dosage: DISINTEGRATING
     Route: 048
  2. ZOLMITRIPTAN. [Suspect]
     Active Substance: ZOLMITRIPTAN
     Route: 048

REACTIONS (3)
  - Intentional product misuse [Unknown]
  - Loss of consciousness [Unknown]
  - Product taste abnormal [Unknown]
